FAERS Safety Report 4414401-9 (Version None)
Quarter: 2004Q3

REPORT INFORMATION
  Report Type: 
  Country: None (occurrence: None)
  Receive Date: 20040701
  Receipt Date: 20030926
  Transmission Date: 20050211
  Serious: Yes (Hospitalization)
  Sender: FDA-Public Use
  Company Number: VISP-PR-0309S-0266(0)

PATIENT
  Age: 62 Year
  Sex: Female

DRUGS (3)
  1. VISIPAQUE [Suspect]
     Indication: INTRACRANIAL ANEURYSM
     Dosage: 130 ML, SINGLE DOSE, I.A.
     Dates: start: 20030822, end: 20030822
  2. MIDAZOLAM HYDROCHLORIDE [Concomitant]
  3. PROMETHAZINE HCL [Concomitant]

REACTIONS (5)
  - ANXIETY [None]
  - DIARRHOEA [None]
  - FATIGUE [None]
  - MALAISE [None]
  - VOMITING [None]
